FAERS Safety Report 5306981-6 (Version None)
Quarter: 2007Q2

REPORT INFORMATION
  Report Type: 
  Country: None (occurrence: None)
  Receive Date: 20070419
  Receipt Date: 20070404
  Transmission Date: 20071010
  Serious: Yes (Hospitalization)
  Sender: FDA-Public Use
  Company Number: 2007BI007305

PATIENT
  Age: 76 Year
  Sex: Female

DRUGS (10)
  1. NATALIZUMAB [Suspect]
     Indication: MULTIPLE SCLEROSIS
     Dosage: 300 MG;QM;IV
     Route: 042
  2. NATALIZUMAB [Suspect]
     Indication: MULTIPLE SCLEROSIS
     Dosage: 300 MG;QM;IV
     Route: 042
     Dates: start: 20061024, end: 20070130
  3. TYLENOL [Concomitant]
  4. LASIX [Concomitant]
  5. NORCO [Concomitant]
  6. MILK OF MAGNESIA [Concomitant]
  7. REGLAN [Concomitant]
  8. TRILEPTAL [Concomitant]
  9. PROTONIX [Concomitant]
  10. PREVACID [Concomitant]

REACTIONS (32)
  - ANAEMIA [None]
  - ATRIOVENTRICULAR BLOCK FIRST DEGREE [None]
  - AUTONOMIC NEUROPATHY [None]
  - BLOOD ELECTROLYTES ABNORMAL [None]
  - CARDIAC FAILURE CONGESTIVE [None]
  - CULTURE URINE POSITIVE [None]
  - DELIRIUM [None]
  - DIARRHOEA [None]
  - DIASTOLIC DYSFUNCTION [None]
  - ELECTROCARDIOGRAM ST-T CHANGE [None]
  - ESCHERICHIA SEPSIS [None]
  - FLUID OVERLOAD [None]
  - HYPOTENSION [None]
  - HYPOTHERMIA [None]
  - HYPOVENTILATION [None]
  - KLEBSIELLA INFECTION [None]
  - MALNUTRITION [None]
  - PLEURAL EFFUSION [None]
  - PNEUMONIA [None]
  - PNEUMONITIS [None]
  - PSEUDOMONAS INFECTION [None]
  - PULMONARY OEDEMA [None]
  - SEPTIC SHOCK [None]
  - SICK SINUS SYNDROME [None]
  - SINUS BRADYCARDIA [None]
  - SINUS TACHYCARDIA [None]
  - SPUTUM CULTURE POSITIVE [None]
  - STAPHYLOCOCCAL INFECTION [None]
  - THROMBOCYTOPENIA [None]
  - TRANSAMINASES INCREASED [None]
  - URINARY TRACT INFECTION [None]
  - UROSEPSIS [None]
